FAERS Safety Report 7615829-6 (Version None)
Quarter: 2011Q3

REPORT INFORMATION
  Report Type: 
  Country: None (occurrence: None)
  Receive Date: 20110711
  Receipt Date: 20110624
  Transmission Date: 20111222
  Serious: Yes (Hospitalization, Other)
  Sender: FDA-Public Use
  Company Number: 2011MA008040

PATIENT
  Age: 76 Year
  Sex: Male

DRUGS (2)
  1. TICLOPIDINE HYDROCHLORIDE [Suspect]
     Indication: CORONARY ANGIOPLASTY
     Dates: start: 20080201, end: 20090202
  2. ASPIRIN [Suspect]
     Indication: CORONARY ANGIOPLASTY
     Dates: start: 20080201, end: 20090201

REACTIONS (9)
  - PYREXIA [None]
  - PAIN IN EXTREMITY [None]
  - PLEURAL EFFUSION [None]
  - OEDEMA PERIPHERAL [None]
  - ANTINUCLEAR ANTIBODY INCREASED [None]
  - DRUG HYPERSENSITIVITY [None]
  - MYALGIA [None]
  - CHEST PAIN [None]
  - LUPUS-LIKE SYNDROME [None]
